FAERS Safety Report 7433547-4 (Version None)
Quarter: 2011Q2

REPORT INFORMATION
  Report Type: 
  Country: None (occurrence: None)
  Receive Date: 20110422
  Receipt Date: 20110411
  Transmission Date: 20111010
  Serious: Yes (Other)
  Sender: FDA-Public Use
  Company Number: PHHY2010MX22543

PATIENT
  Sex: Female

DRUGS (4)
  1. RASILEZ [Suspect]
     Indication: HYPERTENSION
     Dosage: 1 DF, QD
     Route: 048
     Dates: start: 20100101, end: 20100315
  2. GALVUS MET [Suspect]
     Indication: DIABETES MELLITUS
     Dosage: 2 DF (500/50 MG) DAILY
     Route: 048
     Dates: start: 20100101
  3. ASPIRIN [Concomitant]
  4. INSULIN [Concomitant]
     Dosage: UNK
     Dates: end: 20100315

REACTIONS (4)
  - BLOOD PRESSURE INCREASED [None]
  - TINNITUS [None]
  - MALAISE [None]
  - BLOOD GLUCOSE INCREASED [None]
